FAERS Safety Report 8455326-1 (Version None)
Quarter: 2012Q2

REPORT INFORMATION
  Report Type: 
  Country: None (occurrence: None)
  Receive Date: 20120621
  Receipt Date: 20120618
  Transmission Date: 20120825
  Serious: Yes (Other)
  Sender: FDA-Public Use
  Company Number: US-PFIZER INC-2012146253

PATIENT
  Sex: Male

DRUGS (2)
  1. EFFEXOR [Suspect]
     Indication: ANXIETY
     Dosage: 37 MG, DAILY
     Dates: start: 20120301, end: 20120601
  2. EFFEXOR [Suspect]
     Indication: DEPRESSION

REACTIONS (5)
  - HYPOMANIA [None]
  - SEXUALLY INAPPROPRIATE BEHAVIOUR [None]
  - DRUG ABUSE [None]
  - LIBIDO INCREASED [None]
  - AGGRESSION [None]
